FAERS Safety Report 18712649 (Version 1)
Quarter: 2021Q1

REPORT INFORMATION
  Report Type: Spontaneous
  Country: IT (occurrence: IT)
  Receive Date: 20210107
  Receipt Date: 20210107
  Transmission Date: 20210419
  Serious: Yes (Other)
  Sender: FDA-Public Use
  Company Number: IT-MYLANLABS-2021M1000509

PATIENT
  Age: 67 Year
  Sex: Female

DRUGS (3)
  1. BOSENTAN. [Suspect]
     Active Substance: BOSENTAN
     Indication: SCLERODERMA
     Route: 065
  2. PROSTACYCLIN [Concomitant]
     Active Substance: EPOPROSTENOL
     Indication: SCLERODERMA
     Route: 065
  3. SILDENAFIL. [Suspect]
     Active Substance: SILDENAFIL
     Indication: SCLERODERMA
     Route: 065

REACTIONS (1)
  - Drug ineffective [Unknown]
